FAERS Safety Report 9720370 (Version 1)
Quarter: 2013Q4

REPORT INFORMATION
  Report Type: Spontaneous
  Country: US (occurrence: US)
  Receive Date: 20131129
  Receipt Date: 20131129
  Transmission Date: 20140711
  Serious: Yes (Hospitalization)
  Sender: FDA-Public Use
  Company Number: US-ROCHE-1306117

PATIENT
  Age: 78 Year
  Sex: Male

DRUGS (1)
  1. ERIVEDGE [Suspect]
     Indication: BASAL CELL CARCINOMA
     Route: 065
     Dates: start: 20130530

REACTIONS (7)
  - Gastrointestinal haemorrhage [Unknown]
  - Gastrointestinal perforation [Unknown]
  - Haemorrhoids [Unknown]
  - Weight decreased [Unknown]
  - Alopecia [Unknown]
  - Muscle spasms [Unknown]
  - Decreased appetite [Unknown]
